FAERS Safety Report 17462529 (Version 1)
Quarter: 2020Q1

REPORT INFORMATION
  Report Type: Spontaneous
  Country: BR (occurrence: BR)
  Receive Date: 20200226
  Receipt Date: 20200226
  Transmission Date: 20200409
  Serious: Yes (Other)
  Sender: FDA-Public Use
  Company Number: BR-ASTRAZENECA-2020SE26037

PATIENT
  Sex: Female

DRUGS (1)
  1. SYMBICORT [Suspect]
     Active Substance: BUDESONIDE\FORMOTEROL FUMARATE DIHYDRATE
     Indication: ASTHMA
     Dosage: 160/4.5 MCG, 2 JETS IN THE MORNING AND 2 JETS AT NIGHT
     Route: 055
     Dates: start: 201902

REACTIONS (3)
  - Cough [Unknown]
  - Asthmatic crisis [Unknown]
  - Corona virus infection [Unknown]

NARRATIVE: CASE EVENT DATE: 202001
